FAERS Safety Report 6480553-2 (Version None)
Quarter: 2009Q4

REPORT INFORMATION
  Report Type: 
  Country: None (occurrence: None)
  Receive Date: 20091208
  Receipt Date: 20091203
  Transmission Date: 20100525
  Serious: Yes (Life-Threatening)
  Sender: FDA-Public Use
  Company Number: US-MERCK-0911USA03100

PATIENT
  Age: 48 Year
  Sex: Male

DRUGS (7)
  1. JANUVIA [Suspect]
     Indication: DIABETES MELLITUS
     Route: 048
     Dates: start: 20091001, end: 20091026
  2. METFORMIN [Concomitant]
     Route: 065
  3. AMARYL [Concomitant]
     Route: 065
  4. LISINOPRIL [Concomitant]
     Route: 048
  5. ACTOS [Concomitant]
     Route: 065
  6. TRICOR [Concomitant]
     Route: 065
  7. ATENOLOL [Concomitant]
     Route: 065

REACTIONS (7)
  - AGITATION [None]
  - CARDIAC FAILURE CONGESTIVE [None]
  - DYSPNOEA [None]
  - INSOMNIA [None]
  - LIP BLISTER [None]
  - LIP EXFOLIATION [None]
  - SLEEP DISORDER [None]
